FAERS Safety Report 4514368-9 (Version None)
Quarter: 2004Q4

REPORT INFORMATION
  Report Type: 
  Country: None (occurrence: None)
  Receive Date: 20041130
  Receipt Date: 20041123
  Transmission Date: 20050328
  Serious: Yes (Other)
  Sender: FDA-Public Use
  Company Number: ES-MERCK-0411ESP00034

PATIENT
  Age: 58 Year
  Sex: Female
  Weight: 69 kg

DRUGS (6)
  1. ZETIA [Suspect]
     Indication: HYPERCHOLESTEROLAEMIA
     Route: 048
     Dates: start: 20040930, end: 20041008
  2. ATORVASTATIN CALCIUM [Concomitant]
     Indication: HYPERCHOLESTEROLAEMIA
     Route: 065
  3. INSULIN [Concomitant]
     Indication: DIABETES MELLITUS
     Route: 058
  4. FUROSEMIDE [Concomitant]
     Indication: HYPERTENSION
     Route: 048
  5. OMEPRAZOLE [Concomitant]
     Indication: GASTRIC ULCER
     Route: 048
  6. SPIRONOLACTONE [Concomitant]
     Indication: LIVER DISORDER
     Route: 048

REACTIONS (1)
  - MELAENA [None]
